FAERS Safety Report 13576497 (Version 2)
Quarter: 2017Q3

REPORT INFORMATION
  Report Type: Report from Study
  Country: DE (occurrence: DE)
  Receive Date: 20170524
  Receipt Date: 20170906
  Transmission Date: 20171127
  Serious: Yes (Life-Threatening, Hospitalization, Other)
  Sender: FDA-Public Use
  Company Number: PHHY2016DE072524

PATIENT
  Sex: Female
  Weight: 69 kg

DRUGS (7)
  1. AFINITOR [Suspect]
     Active Substance: EVEROLIMUS
     Indication: BREAST CANCER METASTATIC
     Dosage: 5.0 MG, QD
     Route: 048
     Dates: start: 20140611, end: 20140624
  2. AFINITOR [Suspect]
     Active Substance: EVEROLIMUS
     Dosage: 5.0 MG, QD
     Route: 048
     Dates: start: 20160505, end: 20170511
  3. AFINITOR [Suspect]
     Active Substance: EVEROLIMUS
     Dosage: 5.0 MG, QD
     Route: 048
     Dates: start: 20141229, end: 20160326
  4. EXEMESTANE. [Concomitant]
     Active Substance: EXEMESTANE
     Dosage: 25 MG, QD
     Route: 048
     Dates: start: 20160505
  5. AFINITOR [Suspect]
     Active Substance: EVEROLIMUS
     Dosage: 10.0 MG, QD
     Route: 048
     Dates: start: 20140716, end: 20141218
  6. EXEMESTANE. [Concomitant]
     Active Substance: EXEMESTANE
     Indication: BREAST CANCER METASTATIC
     Dosage: 25 MG, QD
     Route: 048
     Dates: start: 20140611, end: 20160326
  7. AFINITOR [Suspect]
     Active Substance: EVEROLIMUS
     Dosage: 5.0 MG, QD
     Route: 048
     Dates: start: 20140626, end: 20140715

REACTIONS (7)
  - H1N1 influenza [Recovered/Resolved]
  - Pyrexia [Unknown]
  - Cough [Recovered/Resolved]
  - Pyrexia [Recovered/Resolved]
  - Inflammation [Recovered/Resolved]
  - C-reactive protein increased [Unknown]
  - Acne [Recovered/Resolved]

NARRATIVE: CASE EVENT DATE: 20160327
